FAERS Safety Report 13496653 (Version 2)
Quarter: 2017Q2

REPORT INFORMATION
  Report Type: Spontaneous
  Country: US (occurrence: US)
  Receive Date: 20170428
  Receipt Date: 20170428
  Transmission Date: 20170830
  Serious: No
  Sender: FDA-Public Use
  Company Number: US-JAZZ-2017-US-004101

PATIENT
  Sex: Male

DRUGS (22)
  1. DULOXETINE HCL [Concomitant]
     Active Substance: DULOXETINE HYDROCHLORIDE
  2. NUVIGIL [Concomitant]
     Active Substance: ARMODAFINIL
  3. NAPROXEN. [Concomitant]
     Active Substance: NAPROXEN
  4. AZELASTINE [Concomitant]
     Active Substance: AZELASTINE
  5. BUPROPION HCL [Concomitant]
     Active Substance: BUPROPION HYDROCHLORIDE
  6. MODAFINIL. [Concomitant]
     Active Substance: MODAFINIL
  7. PHENTERMINE. [Concomitant]
     Active Substance: PHENTERMINE
  8. XYREM [Suspect]
     Active Substance: SODIUM OXYBATE
     Dosage: 4.5G, BID
     Route: 048
     Dates: start: 201609
  9. TYLENOL WITH CODEINE [Concomitant]
     Active Substance: ACETAMINOPHEN\CODEINE PHOSPHATE
  10. ANASTROZOLE. [Concomitant]
     Active Substance: ANASTROZOLE
  11. ETODOLAC. [Concomitant]
     Active Substance: ETODOLAC
  12. TESTOSTERONE. [Concomitant]
     Active Substance: TESTOSTERONE
  13. XYREM [Suspect]
     Active Substance: SODIUM OXYBATE
     Dosage: DOSE ADJUSTMENT
     Route: 048
     Dates: start: 2016, end: 2016
  14. ADDERALL [Concomitant]
     Active Substance: AMPHETAMINE ASPARTATE\AMPHETAMINE SULFATE\DEXTROAMPHETAMINE SACCHARATE\DEXTROAMPHETAMINE SULFATE
  15. FLONASE                            /00908302/ [Concomitant]
     Active Substance: MOMETASONE FUROATE
  16. XYREM [Suspect]
     Active Substance: SODIUM OXYBATE
     Indication: NARCOLEPSY
     Dosage: 2.25G, BID
     Route: 048
     Dates: start: 201601, end: 2016
  17. ADVIL (MEFENAMIC ACID) [Concomitant]
     Active Substance: MEFENAMIC ACID
  18. DEXTROAMPHETAMINE                  /00016601/ [Concomitant]
     Active Substance: DEXTROAMPHETAMINE
  19. ATORVASTATIN [Concomitant]
     Active Substance: ATORVASTATIN
  20. GABAPENTIN. [Concomitant]
     Active Substance: GABAPENTIN
  21. JUICE PLUS [Concomitant]
     Active Substance: DIETARY SUPPLEMENT
  22. CITALOPRAM [Concomitant]
     Active Substance: CITALOPRAM HYDROBROMIDE

REACTIONS (1)
  - Tri-iodothyronine abnormal [Unknown]
